FAERS Safety Report 7010038-6 (Version None)
Quarter: 2010Q3

REPORT INFORMATION
  Report Type: 
  Country: None (occurrence: None)
  Receive Date: 20100923
  Receipt Date: 20100920
  Transmission Date: 20110219
  Serious: Yes (Other)
  Sender: FDA-Public Use
  Company Number: US-GILEAD-2010-0031980

PATIENT
  Age: 82 Year
  Sex: Female

DRUGS (10)
  1. LETAIRIS [Suspect]
     Indication: PULMONARY HYPERTENSION
     Route: 048
     Dates: start: 20100309, end: 20100319
  2. REVATIO [Concomitant]
  3. WARFARIN [Concomitant]
  4. LASIX [Concomitant]
  5. ATENOLOL [Concomitant]
  6. POTASSIUM [Concomitant]
  7. OMEPRAZOLE [Concomitant]
  8. AMITRIPTYLINE HCL [Concomitant]
  9. SYNTHROID [Concomitant]
  10. ESTRADIOL [Concomitant]

REACTIONS (2)
  - DYSPNOEA [None]
  - PULMONARY ARTERY DILATATION [None]
